FAERS Safety Report 14121912 (Version 1)
Quarter: 2017Q4

REPORT INFORMATION
  Report Type: Spontaneous
  Country: US (occurrence: US)
  Receive Date: 20171024
  Receipt Date: 20171024
  Transmission Date: 20180321
  Serious: Yes (Other)
  Sender: FDA-Public Use
  Company Number: US-SUNOVION-2017SUN004572

PATIENT
  Sex: Female

DRUGS (11)
  1. VIMPAT [Suspect]
     Active Substance: LACOSAMIDE
     Dosage: 200 MG, QD
  2. TOPAMAX [Suspect]
     Active Substance: TOPIRAMATE
     Dosage: UNK
  3. VIMPAT [Suspect]
     Active Substance: LACOSAMIDE
     Dosage: 250 MG, QD
  4. ONFI [Suspect]
     Active Substance: CLOBAZAM
     Dosage: 10 MG, QD
  5. ONFI [Suspect]
     Active Substance: CLOBAZAM
     Dosage: 5 MG, QD
  6. TROKENDI [Concomitant]
     Active Substance: TOPIRAMATE
     Indication: SEIZURE
  7. APTIOM [Suspect]
     Active Substance: ESLICARBAZEPINE ACETATE
     Indication: SEIZURE
     Dosage: UNK
     Route: 048
  8. FYCOMPA [Concomitant]
     Active Substance: PERAMPANEL
     Indication: SEIZURE
     Dosage: 2 MG, QD
  9. VIMPAT [Suspect]
     Active Substance: LACOSAMIDE
     Indication: SEIZURE
     Dosage: 300 MG, QD
  10. VIMPAT [Suspect]
     Active Substance: LACOSAMIDE
     Dosage: 225 MG, QD
  11. TOPAMAX [Suspect]
     Active Substance: TOPIRAMATE
     Indication: SEIZURE
     Dosage: UNK

REACTIONS (5)
  - Seizure [Not Recovered/Not Resolved]
  - Drug ineffective [Unknown]
  - Sedation [Not Recovered/Not Resolved]
  - Dry mouth [Not Recovered/Not Resolved]
  - Dizziness [Unknown]
